FAERS Safety Report 10810242 (Version 3)
Quarter: 2015Q2

REPORT INFORMATION
  Report Type: Spontaneous
  Country: US (occurrence: None)
  Receive Date: 20150212
  Receipt Date: 20150422
  Transmission Date: 20150821
  Serious: Yes (Hospitalization)
  Sender: FDA-Public Use
  Company Number: 1713747-2015-99949

PATIENT
  Age: 37 Year
  Sex: Female
  Weight: 66 kg

DRUGS (26)
  1. 0.9% SODIUM CHLORIDE INJECTION, USP [Suspect]
     Active Substance: SODIUM CHLORIDE
     Indication: CHRONIC KIDNEY DISEASE
     Dosage: HEMODIALYSIS
     Dates: start: 20120630
  2. DIALYZER [Concomitant]
  3. ZOLOFT [Concomitant]
     Active Substance: SERTRALINE HYDROCHLORIDE
  4. GABAPENTIN. [Concomitant]
     Active Substance: GABAPENTIN
  5. HUMALOG [Concomitant]
     Active Substance: INSULIN LISPRO
  6. NORVASC [Concomitant]
     Active Substance: AMLODIPINE BESYLATE
  7. FRESENIUS 2008K DIALYSIS MACHINE [Concomitant]
  8. RENVELA [Concomitant]
     Active Substance: SEVELAMER CARBONATE
  9. COUMADIN [Concomitant]
     Active Substance: WARFARIN SODIUM
  10. FMC BLOOD LINES [Concomitant]
  11. EPOGEN [Concomitant]
     Active Substance: ERYTHROPOIETIN
  12. ZEMPLAR [Concomitant]
     Active Substance: PARICALCITOL
  13. SODIUM BICARBONATE. [Concomitant]
     Active Substance: SODIUM BICARBONATE
  14. CALCIFEROL [Concomitant]
     Active Substance: ERGOCALCIFEROL
  15. LANTUS [Concomitant]
     Active Substance: INSULIN GLARGINE
  16. GRANUFLO [Concomitant]
     Active Substance: ACETIC ACID\SODIUM ACETATE
  17. NATURALYTE [Concomitant]
     Active Substance: ACETIC ACID\SODIUM ACETATE
  18. NORMAL SALINE [Concomitant]
     Active Substance: SODIUM CHLORIDE
  19. TUMS [Concomitant]
     Active Substance: CALCIUM CARBONATE
  20. NEURONTIN [Concomitant]
     Active Substance: GABAPENTIN
  21. BABY ASPIRIN [Concomitant]
     Active Substance: ASPIRIN
  22. LISINOPRIL. [Concomitant]
     Active Substance: LISINOPRIL
  23. TRAZODONE [Concomitant]
     Active Substance: TRAZODONE HYDROCHLORIDE
  24. NEPHRO-CAPS [Concomitant]
  25. COREG [Concomitant]
     Active Substance: CARVEDILOL
  26. LOVENOX [Concomitant]
     Active Substance: ENOXAPARIN SODIUM

REACTIONS (5)
  - Hypertension [None]
  - Platelet count decreased [None]
  - Product quality issue [None]
  - Staphylococcal bacteraemia [None]
  - Gallbladder disorder [None]

NARRATIVE: CASE EVENT DATE: 20120613
